FAERS Safety Report 6251368-5 (Version None)
Quarter: 2009Q2

REPORT INFORMATION
  Report Type: 
  Country: None (occurrence: None)
  Receive Date: 20090630
  Receipt Date: 20090623
  Transmission Date: 20091009
  Serious: Yes (Hospitalization)
  Sender: FDA-Public Use
  Company Number: B0573719A

PATIENT
  Sex: Female
  Weight: 8.1 kg

DRUGS (2)
  1. ALKERAN [Suspect]
     Indication: RETINOBLASTOMA BILATERAL
     Route: 013
     Dates: start: 20090421, end: 20090421
  2. KYTRIL [Concomitant]
     Indication: PROPHYLAXIS OF NAUSEA AND VOMITING
     Dosage: .3MG PER DAY
     Route: 042
     Dates: start: 20090418, end: 20090418

REACTIONS (6)
  - ALOPECIA [None]
  - APHTHOUS STOMATITIS [None]
  - FLUID INTAKE RESTRICTION [None]
  - LIP ULCERATION [None]
  - PANCYTOPENIA [None]
  - STOMATITIS [None]
